FAERS Safety Report 13669098 (Version 2)
Quarter: 2017Q2

REPORT INFORMATION
  Report Type: Spontaneous
  Country: US (occurrence: US)
  Receive Date: 20170620
  Receipt Date: 20170621
  Transmission Date: 20170830
  Serious: No
  Sender: FDA-Public Use
  Company Number: US-GLAXOSMITHKLINE-US2017093094

PATIENT
  Age: 62 Year
  Sex: Female

DRUGS (2)
  1. ROBITUSSIN WITH CODEINE [Suspect]
     Active Substance: CODEINE PHOSPHATE\GUAIFENESIN\PHENIRAMINE MALEATE
     Indication: PRODUCT USED FOR UNKNOWN INDICATION
     Dosage: UNK
  2. BENLYSTA [Suspect]
     Active Substance: BELIMUMAB
     Indication: PRODUCT USED FOR UNKNOWN INDICATION
     Dosage: UNK
     Dates: start: 201610

REACTIONS (7)
  - Vomiting [Unknown]
  - Weight decreased [Unknown]
  - Myalgia [Unknown]
  - Fatigue [Unknown]
  - Muscle spasms [Unknown]
  - Abdominal pain [Unknown]
  - Cough [Unknown]

NARRATIVE: CASE EVENT DATE: 201702
